FAERS Safety Report 8066624-8 (Version None)
Quarter: 2012Q1

REPORT INFORMATION
  Report Type: 
  Country: None (occurrence: None)
  Receive Date: 20120124
  Receipt Date: 20120119
  Transmission Date: 20120608
  Serious: Yes (Other)
  Sender: FDA-Public Use
  Company Number: PHHY2012PA005078

PATIENT
  Age: 51 Year
  Sex: Male

DRUGS (2)
  1. EXFORGE HCT [Suspect]
     Dosage: 320 MG VALS,10 MG AMLO AND 25 MG HYDRO
  2. DIOVAN [Suspect]
     Dosage: 160 MG

REACTIONS (1)
  - CEREBROVASCULAR ACCIDENT [None]
